FAERS Safety Report 20022149 (Version 1)
Quarter: 2021Q4

REPORT INFORMATION
  Report Type: Spontaneous
  Country: PT (occurrence: PT)
  Receive Date: 20211102
  Receipt Date: 20211102
  Transmission Date: 20220303
  Serious: Yes (Other)
  Sender: FDA-Public Use
  Company Number: PT-AUROBINDO-AUR-APL-2021-043594

PATIENT
  Age: 41 Year
  Sex: Female

DRUGS (2)
  1. ROPIVACAINE [Suspect]
     Active Substance: ROPIVACAINE
     Indication: Epidural anaesthesia
     Dosage: 10 MILLILITER (0.2%)
     Route: 040
  2. ROPIVACAINE [Suspect]
     Active Substance: ROPIVACAINE
     Dosage: UNK (0.16% 5.2 ML/H.)
     Route: 065

REACTIONS (4)
  - Hemiparesis [Unknown]
  - Hypoaesthesia [Unknown]
  - Paraesthesia [Unknown]
  - Allodynia [Unknown]
